FAERS Safety Report 25128198 (Version 2)
Quarter: 2025Q3

REPORT INFORMATION
  Report Type: Spontaneous
  Country: EU (occurrence: EU)
  Receive Date: 20250327
  Receipt Date: 20250803
  Transmission Date: 20251021
  Serious: Yes (Hospitalization, Other)
  Sender: ALEXION PHARMACEUTICALS
  Company Number: EU-AstraZeneca-CH-00828018A

PATIENT
  Age: 42 Year
  Sex: Female

DRUGS (6)
  1. DAPAGLIFLOZIN [Suspect]
     Active Substance: DAPAGLIFLOZIN
     Indication: Cardiac failure
     Dates: start: 202407
  2. NOLVADEX [Suspect]
     Active Substance: TAMOXIFEN CITRATE
     Route: 065
  3. GOSERELIN [Suspect]
     Active Substance: GOSERELIN
     Route: 065
  4. TAMOXIFEN [Concomitant]
     Active Substance: TAMOXIFEN
     Route: 065
  5. GOSERELIN [Concomitant]
     Active Substance: GOSERELIN
     Route: 065
  6. DAPAGLIFLOZIN [Concomitant]
     Active Substance: DAPAGLIFLOZIN
     Route: 065

REACTIONS (20)
  - Blood pressure increased [Unknown]
  - Dyspnoea [Unknown]
  - Cough [Unknown]
  - Palpitations [Unknown]
  - Asthenia [Unknown]
  - Eye disorder [Unknown]
  - Peripheral swelling [Unknown]
  - Systolic dysfunction [Unknown]
  - Diastolic dysfunction [Unknown]
  - Cardiac disorder [Unknown]
  - Ventricular hypokinesia [Unknown]
  - Viral infection [Unknown]
  - Dizziness [Unknown]
  - Loss of consciousness [Unknown]
  - Mitral valve incompetence [Unknown]
  - Tricuspid valve incompetence [Unknown]
  - Pulmonary arterial hypertension [Unknown]
  - Cardiac aneurysm [Unknown]
  - Pericardial effusion [Unknown]
  - Pleural effusion [Unknown]
